FAERS Safety Report 18480230 (Version 4)
Quarter: 2020Q4

REPORT INFORMATION
  Report Type: Report from Study
  Country: DE (occurrence: DE)
  Receive Date: 20201109
  Receipt Date: 20201203
  Transmission Date: 20210114
  Serious: Yes (Life-Threatening, Hospitalization, Other)
  Sender: FDA-Public Use
  Company Number: DE-CELGENEUS-DEU-20201100363

PATIENT
  Age: 57 Year
  Sex: Male
  Weight: 159 kg

DRUGS (6)
  1. OZANIMOD. [Suspect]
     Active Substance: OZANIMOD
     Indication: CROHN^S DISEASE
     Dosage: .92 MILLIGRAM
     Route: 048
     Dates: start: 20200706, end: 20201030
  2. TORASEMID [Concomitant]
     Active Substance: TORSEMIDE
     Indication: OEDEMA
     Dosage: 40 MILLIGRAM
     Route: 048
     Dates: start: 2001
  3. APIXABAN [Concomitant]
     Active Substance: APIXABAN
     Indication: PULMONARY EMBOLISM
     Dosage: 10 MILLIGRAM
     Route: 048
     Dates: start: 2018
  4. ULTIBRO BREEZHALER [Concomitant]
     Active Substance: GLYCOPYRRONIUM\INDACATEROL
     Indication: CHRONIC OBSTRUCTIVE PULMONARY DISEASE
     Dosage: 1000 MILLIGRAM
     Route: 055
     Dates: start: 1998
  5. ALLOPURINOL. [Concomitant]
     Active Substance: ALLOPURINOL
     Indication: GOUT
     Dosage: 300 MILLIGRAM
     Route: 048
     Dates: start: 1990
  6. METFORMIN HYDROCHLORID [Concomitant]
     Indication: TYPE 2 DIABETES MELLITUS
     Dosage: 2000 MILLIGRAM
     Route: 048
     Dates: start: 2017

REACTIONS (1)
  - COVID-19 [Recovered/Resolved]

NARRATIVE: CASE EVENT DATE: 20201029
